FAERS Safety Report 8909242 (Version 1)
Quarter: 2012Q4

REPORT INFORMATION
  Report Type: Spontaneous
  Country: DK (occurrence: None)
  Receive Date: 20121106
  Receipt Date: 20121106
  Transmission Date: 20130627
  Serious: Yes (Other)
  Sender: FDA-Public Use
  Company Number: 2012MA012809

PATIENT
  Age: 71 Year
  Sex: Male

DRUGS (5)
  1. IRINOTECAN HYDROCHLORIDE [Suspect]
     Indication: METASTATIC COLORECTAL CANCER
  2. FLUOROURACIL (FLUOROURACIL) [Suspect]
  3. CALCIUM FOLINATE (CALCIUM FOLINATE [Suspect]
  4. ELOXATIN [Suspect]
     Route: 042
     Dates: start: 20070822, end: 20071219
  5. CAPECITABINE [Concomitant]

REACTIONS (3)
  - Neurotoxicity [None]
  - Paraesthesia [None]
  - Areflexia [None]
